FAERS Safety Report 8798220 (Version 3)
Quarter: 2013Q1

REPORT INFORMATION
  Report Type: Spontaneous
  Country: FR (occurrence: FR)
  Receive Date: 20120920
  Receipt Date: 20130212
  Transmission Date: 20140127
  Serious: Yes (Hospitalization)
  Sender: FDA-Public Use
  Company Number: FR-PFIZER INC-2012229026

PATIENT
  Age: 66 Year
  Sex: Female

DRUGS (18)
  1. LYRICA [Suspect]
     Indication: PAIN
     Dosage: 150 MG, 2X/DAY
     Route: 048
     Dates: start: 20120806, end: 20120810
  2. LYRICA [Suspect]
     Dosage: 125 MG PER DAY (25-50-50)
     Route: 048
     Dates: start: 20120810, end: 20120814
  3. ZELITREX [Suspect]
     Indication: HERPES ZOSTER
     Dosage: 1000 MG, 3X/DAY
     Route: 048
     Dates: start: 20120806, end: 20120819
  4. ZELITREX [Suspect]
     Indication: PAIN
  5. TEGRETOL [Suspect]
     Indication: HERPES ZOSTER
     Dosage: 200 MG, 3X/DAY
     Route: 048
     Dates: start: 20120814, end: 20120819
  6. TEGRETOL [Suspect]
     Indication: PAIN
  7. IXPRIM [Suspect]
     Indication: HERPES ZOSTER
     Dosage: 2 DF, 3X/DAY
     Route: 048
     Dates: start: 20120810, end: 20120814
  8. IXPRIM [Suspect]
     Indication: PAIN
  9. ACUPAN [Suspect]
     Indication: HERPES ZOSTER
     Dosage: 1 DF, 3X/DAY
     Route: 051
     Dates: start: 20120806, end: 20120810
  10. ACUPAN [Suspect]
     Indication: PAIN
  11. XANAX [Concomitant]
     Indication: HERPES ZOSTER
     Dosage: 0.25 MG, 3X/DAY
     Route: 048
     Dates: start: 20120810, end: 20120819
  12. XANAX [Concomitant]
     Indication: PAIN
  13. FLUOXETINE [Concomitant]
  14. LANZOR [Concomitant]
  15. PRAVASTATIN [Concomitant]
  16. SOTALOL [Concomitant]
  17. SPAGULAX [Concomitant]
  18. STILNOX [Concomitant]

REACTIONS (11)
  - Nausea [Recovered/Resolved]
  - Vomiting [Recovered/Resolved]
  - Decreased appetite [Recovered/Resolved]
  - Hepatocellular injury [Recovering/Resolving]
  - Hyponatraemia [Recovered/Resolved]
  - Abdominal pain [Recovered/Resolved]
  - Diarrhoea [Recovered/Resolved]
  - Headache [Recovered/Resolved]
  - Asthenia [Unknown]
  - Neuralgia [Not Recovered/Not Resolved]
  - Hyperaesthesia [Not Recovered/Not Resolved]
